FAERS Safety Report 9543206 (Version 1)
Quarter: 2013Q2

REPORT INFORMATION
  Report Type: Spontaneous
  Country: US (occurrence: None)
  Receive Date: 20130524
  Receipt Date: 20130524
  Transmission Date: 20140414
  Serious: Yes (Other)
  Sender: FDA-Public Use
  Company Number: PHEH2012US025675

PATIENT
  Sex: Female
  Weight: 62.6 kg

DRUGS (1)
  1. GILENYA (FINGOLIMOD) CAPSULE, 0.5MG [Suspect]
     Indication: MULTIPLE SCLEROSIS
     Route: 048
     Dates: start: 20111227

REACTIONS (7)
  - White blood cell count decreased [None]
  - Malaise [None]
  - Nausea [None]
  - Liver function test abnormal [None]
  - Headache [None]
  - Dizziness [None]
  - Inappropriate schedule of drug administration [None]
